FAERS Safety Report 5386678-7 (Version None)
Quarter: 2007Q3

REPORT INFORMATION
  Report Type: 
  Country: None (occurrence: None)
  Receive Date: 20070713
  Receipt Date: 20070704
  Transmission Date: 20080115
  Serious: Yes (Hospitalization, Other)
  Sender: FDA-Public Use
  Company Number: GB-JNJFOC-20070701209

PATIENT
  Sex: Male
  Weight: 79 kg

DRUGS (3)
  1. INFLIXIMAB [Suspect]
     Indication: ANKYLOSING SPONDYLITIS
     Route: 042
  2. CO-DYDRAMOL [Concomitant]
  3. INDOMETHACIN [Concomitant]

REACTIONS (4)
  - CELLULITIS STAPHYLOCOCCAL [None]
  - EPILEPSY [None]
  - RECTAL ABSCESS [None]
  - SKIN ULCER [None]
